FAERS Safety Report 23774832 (Version 3)
Quarter: 2024Q2

REPORT INFORMATION
  Report Type: Spontaneous
  Country: US (occurrence: US)
  Receive Date: 20240423
  Receipt Date: 20240625
  Transmission Date: 20240716
  Serious: No
  Sender: FDA-Public Use
  Company Number: US-SA-SAC20240417000910

PATIENT
  Age: 56 Year
  Sex: Female

DRUGS (3)
  1. DUPIXENT [Suspect]
     Active Substance: DUPILUMAB
     Indication: Dermatitis atopic
     Dosage: 2 DF, 1X
     Route: 058
     Dates: start: 202401, end: 202401
  2. DUPIXENT [Suspect]
     Active Substance: DUPILUMAB
     Dosage: 300 MG, QOW
     Route: 058
     Dates: start: 202402
  3. TACROLIMUS [Suspect]
     Active Substance: TACROLIMUS
     Dosage: UNK
     Dates: end: 20240329

REACTIONS (11)
  - Skin infection [Unknown]
  - Skin disorder [Unknown]
  - Fatigue [Unknown]
  - Sensitive skin [Unknown]
  - Photosensitivity reaction [Unknown]
  - Erythema [Unknown]
  - Herpes zoster [Unknown]
  - COVID-19 [Unknown]
  - Insomnia [Unknown]
  - Dry eye [Unknown]
  - Conjunctivitis [Unknown]

NARRATIVE: CASE EVENT DATE: 20240101
